FAERS Safety Report 21004626 (Version 1)
Quarter: 2022Q2

REPORT INFORMATION
  Report Type: Spontaneous
  Country: US (occurrence: US)
  Receive Date: 20220624
  Receipt Date: 20220624
  Transmission Date: 20220721
  Serious: Yes (Other)
  Sender: FDA-Public Use
  Company Number: US-BAYER-2022A087947

PATIENT
  Age: 15 Year
  Sex: Female

DRUGS (1)
  1. LAROTRECTINIB [Suspect]
     Active Substance: LAROTRECTINIB
     Dosage: 100 MG, BID
     Route: 048

REACTIONS (6)
  - Leukopenia [Recovered/Resolved]
  - Headache [None]
  - Dizziness [None]
  - Temperature regulation disorder [None]
  - Paraesthesia [None]
  - Fatigue [Recovered/Resolved]
